FAERS Safety Report 8248517 (Version 6)
Quarter: 2013Q2

REPORT INFORMATION
  Report Type: Report from Study
  Country: JP (occurrence: JP)
  Receive Date: 20111117
  Receipt Date: 20130528
  Transmission Date: 20140414
  Serious: Yes (Other)
  Sender: FDA-Public Use
  Company Number: JP-BRISTOL-MYERS SQUIBB COMPANY-16229221

PATIENT
  Age: 72 Year
  Sex: Female

DRUGS (7)
  1. ORENCIA FOR INJ 250 MG/VIAL [Suspect]
     Indication: RHEUMATOID ARTHRITIS
     Dosage: 16JUN11,02AUG11,30AUG11
     Dates: start: 20110602, end: 20110927
  2. METHOTREXATE [Suspect]
  3. ALESION [Concomitant]
     Indication: ALLERGY PROPHYLAXIS
  4. MUCOSOLVAN [Concomitant]
     Indication: PRODUCTIVE COUGH
  5. MUCOSOLVAN [Concomitant]
     Indication: PROPHYLAXIS
  6. HALCION [Concomitant]
     Indication: PROPHYLAXIS
  7. AMOBAN [Concomitant]
     Indication: PROPHYLAXIS

REACTIONS (1)
  - Dermatitis psoriasiform [Recovered/Resolved]
